FAERS Safety Report 15585935 (Version 1)
Quarter: 2018Q4

REPORT INFORMATION
  Report Type: Spontaneous
  Country: FR (occurrence: FR)
  Receive Date: 20181105
  Receipt Date: 20181105
  Transmission Date: 20190205
  Serious: Yes (Death, Other)
  Sender: FDA-Public Use
  Company Number: FR-JNJFOC-20181042016

PATIENT
  Age: 7 Decade
  Sex: Female

DRUGS (1)
  1. IBRUTINIB [Suspect]
     Active Substance: IBRUTINIB
     Indication: MANTLE CELL LYMPHOMA
     Route: 048
     Dates: start: 20140408, end: 20140801

REACTIONS (4)
  - Arthritis bacterial [Unknown]
  - Haematoma [Unknown]
  - Myelodysplastic syndrome [Unknown]
  - Spinal cord injury [Unknown]

NARRATIVE: CASE EVENT DATE: 201407
